FAERS Safety Report 6750231-0 (Version None)
Quarter: 2010Q2

REPORT INFORMATION
  Report Type: 
  Country: None (occurrence: None)
  Receive Date: 20100601
  Receipt Date: 20100521
  Transmission Date: 20101027
  Serious: Yes (Other)
  Sender: FDA-Public Use
  Company Number: US-PFIZER INC-2010064503

PATIENT
  Sex: Female

DRUGS (1)
  1. COLESTIPOL HCL [Suspect]
     Indication: BLOOD CHOLESTEROL INCREASED
     Dosage: 1 G, UNK
     Route: 048
     Dates: start: 20091001

REACTIONS (3)
  - BURNING SENSATION [None]
  - CONSTIPATION [None]
  - GAIT DISTURBANCE [None]
